FAERS Safety Report 7589191-1 (Version None)
Quarter: 2011Q3

REPORT INFORMATION
  Report Type: 
  Country: None (occurrence: None)
  Receive Date: 20110705
  Receipt Date: 20110621
  Transmission Date: 20111222
  Serious: Yes (Hospitalization)
  Sender: FDA-Public Use
  Company Number: NL-EISAI INC-E3810-04770-CLI-NL

PATIENT
  Sex: Male
  Weight: 4.2 kg

DRUGS (1)
  1. RABEPRAZOLE SODIUM [Suspect]
     Route: 048
     Dates: start: 20110519

REACTIONS (1)
  - VIRAL INFECTION [None]
